FAERS Safety Report 25954655 (Version 1)
Quarter: 2025Q4

REPORT INFORMATION
  Report Type: Spontaneous
  Country: EG (occurrence: EG)
  Receive Date: 20251024
  Receipt Date: 20251024
  Transmission Date: 20260117
  Serious: Yes (Death, Congenital Anomaly, Other)
  Sender: SANDOZ
  Company Number: EG-002147023-NVSC2021EG142459

PATIENT
  Sex: Female

DRUGS (10)
  1. ASPIRIN [Suspect]
     Active Substance: ASPIRIN
     Indication: Foetal exposure during pregnancy
     Dosage: MATERNAL DOSE: 75 MG, BID
     Route: 064
  2. HYDROXYCHLOROQUINE [Suspect]
     Active Substance: HYDROXYCHLOROQUINE
     Indication: Foetal exposure during pregnancy
     Dosage: MATERNAL DOSE:200 MG, BID
     Route: 064
  3. IRON [Suspect]
     Active Substance: IRON
     Indication: Foetal exposure during pregnancy
     Dosage: MATERNAL DOSE: UNKNOWN
     Route: 064
  4. MYCOPHENOLATE MOFETIL [Suspect]
     Active Substance: MYCOPHENOLATE MOFETIL
     Indication: Foetal exposure during pregnancy
     Dosage: MATERNAL DOSE: 2 G, QD
     Route: 064
  5. MYCOPHENOLATE MOFETIL [Suspect]
     Active Substance: MYCOPHENOLATE MOFETIL
     Indication: Lupus nephritis
  6. PREDNISOLONE [Suspect]
     Active Substance: PREDNISOLONE
     Indication: Foetal exposure during pregnancy
     Dosage: MATERNAL DOSE: 25 MG, QD
     Route: 064
  7. PREDNISOLONE [Suspect]
     Active Substance: PREDNISOLONE
     Indication: Lupus nephritis
  8. ASPIRIN [Concomitant]
     Active Substance: ASPIRIN
     Indication: Product used for unknown indication
     Dosage: 75 MG, BID
     Route: 064
  9. METHYLDOPA [Concomitant]
     Active Substance: METHYLDOPA
     Indication: Foetal exposure during pregnancy
     Dosage: MATERNAL DOSE: 250 MG BID
     Route: 064
  10. CALCIUM [Concomitant]
     Active Substance: CALCIUM
     Indication: Foetal exposure during pregnancy
     Dosage: MATERNAL DOSE: UNKNOWN
     Route: 064

REACTIONS (10)
  - Limb hypoplasia congenital [Fatal]
  - Limb reduction defect [Fatal]
  - Talipes [Fatal]
  - Micrognathia [Fatal]
  - Bone deformity [Unknown]
  - Congenital musculoskeletal disorder of limbs [Unknown]
  - Foetal growth restriction [Unknown]
  - Craniofacial deformity [Unknown]
  - Limb deformity [Unknown]
  - Foetal exposure during pregnancy [Unknown]
